FAERS Safety Report 6637960-4 (Version None)
Quarter: 2010Q1

REPORT INFORMATION
  Report Type: 
  Country: None (occurrence: None)
  Receive Date: 20100317
  Receipt Date: 20100315
  Transmission Date: 20100710
  Serious: Yes (Life-Threatening, Hospitalization)
  Sender: FDA-Public Use
  Company Number: PHEH2010US03092

PATIENT
  Sex: Female

DRUGS (3)
  1. DIOVAN [Suspect]
     Dosage: 160 MG, UNK
     Route: 048
  2. LABETALOL HCL [Concomitant]
  3. CLONIDINE [Concomitant]

REACTIONS (2)
  - BLOOD SODIUM DECREASED [None]
  - FEELING ABNORMAL [None]
